FAERS Safety Report 24668437 (Version 1)
Quarter: 2024Q4

REPORT INFORMATION
  Report Type: Spontaneous
  Country: CN (occurrence: CN)
  Receive Date: 20241127
  Receipt Date: 20241127
  Transmission Date: 20250114
  Serious: Yes (Death, Hospitalization)
  Sender: STRIDES
  Company Number: CN-STRIDES ARCOLAB LIMITED-2024SP015147

PATIENT
  Age: 28 Year
  Sex: Male

DRUGS (30)
  1. ETOPOSIDE [Suspect]
     Active Substance: ETOPOSIDE
     Indication: Chronic leukaemia
     Dosage: UNK
     Route: 065
     Dates: start: 2022
  2. ETOPOSIDE [Suspect]
     Active Substance: ETOPOSIDE
     Indication: Precursor T-lymphoblastic leukaemia acute
  3. PREDNISOLONE [Suspect]
     Active Substance: PREDNISOLONE
     Indication: Chronic leukaemia
     Dosage: UNK, (PART OF VICLP REGIMEN AND VCP REGIMEN)
     Route: 065
     Dates: start: 2022
  4. PREDNISOLONE [Suspect]
     Active Substance: PREDNISOLONE
     Indication: Precursor T-lymphoblastic leukaemia acute
  5. METHOTREXATE [Suspect]
     Active Substance: METHOTREXATE
     Indication: Chronic leukaemia
     Dosage: UNK
     Route: 065
     Dates: start: 2022
  6. METHOTREXATE [Suspect]
     Active Substance: METHOTREXATE
     Indication: Precursor T-lymphoblastic leukaemia acute
     Dosage: UNK, (HIGH DOSE)
     Route: 065
     Dates: start: 2022
  7. METHOTREXATE [Suspect]
     Active Substance: METHOTREXATE
     Indication: Psoriatic arthropathy
  8. DICLOFENAC [Suspect]
     Active Substance: DICLOFENAC
     Indication: Psoriatic arthropathy
     Dosage: UNK
     Route: 065
     Dates: start: 2022
  9. RUXOLITINIB [Suspect]
     Active Substance: RUXOLITINIB
     Indication: Chronic leukaemia
     Dosage: UNK
     Route: 048
     Dates: start: 2022
  10. RUXOLITINIB [Suspect]
     Active Substance: RUXOLITINIB
     Indication: Precursor T-lymphoblastic leukaemia acute
  11. VINCRISTINE [Suspect]
     Active Substance: VINCRISTINE
     Indication: Chronic leukaemia
     Dosage: UNK, (PART OF VICLP REGIMEN AND VCP REGIMEN)
     Route: 065
     Dates: start: 2022
  12. VINCRISTINE [Suspect]
     Active Substance: VINCRISTINE
     Indication: Precursor T-lymphoblastic leukaemia acute
  13. IDARUBICIN [Suspect]
     Active Substance: IDARUBICIN
     Indication: Chronic leukaemia
     Dosage: UNK, (PART OF VICLP REGIMEN)
     Route: 065
     Dates: start: 2022
  14. IDARUBICIN [Suspect]
     Active Substance: IDARUBICIN
     Indication: Precursor T-lymphoblastic leukaemia acute
  15. CYCLOPHOSPHAMIDE [Suspect]
     Active Substance: CYCLOPHOSPHAMIDE
     Indication: Chronic leukaemia
     Dosage: UNK, (PART OF VICLP REGIMEN AND VCP REGIMEN)
     Route: 065
     Dates: start: 2022
  16. CYCLOPHOSPHAMIDE [Suspect]
     Active Substance: CYCLOPHOSPHAMIDE
     Indication: Precursor T-lymphoblastic leukaemia acute
  17. PEG/L-ASPARAGINASE [Suspect]
     Active Substance: PEGASPARGASE
     Indication: Chronic leukaemia
     Dosage: UNK, (PART OF VICLP REGIMEN)
     Route: 065
     Dates: start: 2022
  18. PEG/L-ASPARAGINASE [Suspect]
     Active Substance: PEGASPARGASE
     Indication: Precursor T-lymphoblastic leukaemia acute
  19. CYTARABINE [Suspect]
     Active Substance: CYTARABINE
     Indication: Chronic leukaemia
     Dosage: UNK, (HIGH DOSE)
     Route: 065
     Dates: start: 2022
  20. CYTARABINE [Suspect]
     Active Substance: CYTARABINE
     Indication: Precursor T-lymphoblastic leukaemia acute
  21. DARATUMUMAB [Suspect]
     Active Substance: DARATUMUMAB
     Indication: Chronic leukaemia
     Dosage: 400 MILLIGRAM, ONCE A WEEK
     Route: 065
     Dates: start: 2022
  22. DARATUMUMAB [Suspect]
     Active Substance: DARATUMUMAB
     Indication: Precursor T-lymphoblastic leukaemia acute
  23. SELINEXOR [Suspect]
     Active Substance: SELINEXOR
     Indication: Chronic leukaemia
     Dosage: 60 MILLIGRAM, ONCE A WEEK
     Route: 065
     Dates: start: 20230214
  24. SELINEXOR [Suspect]
     Active Substance: SELINEXOR
     Indication: Precursor T-lymphoblastic leukaemia acute
  25. VENETOCLAX [Suspect]
     Active Substance: VENETOCLAX
     Indication: Chronic leukaemia
     Dosage: 200 MILLIGRAM, ONCE A WEEK (ON DAY1-28)
     Route: 065
     Dates: start: 20230214
  26. VENETOCLAX [Suspect]
     Active Substance: VENETOCLAX
     Indication: Precursor T-lymphoblastic leukaemia acute
  27. ACLARUBICIN HYDROCHLORIDE [Suspect]
     Active Substance: ACLARUBICIN HYDROCHLORIDE
     Indication: Chronic leukaemia
     Dosage: UNK, (PART OF CAG REGIMEN)
     Route: 065
     Dates: start: 20230214
  28. ACLARUBICIN HYDROCHLORIDE [Suspect]
     Active Substance: ACLARUBICIN HYDROCHLORIDE
     Indication: Precursor T-lymphoblastic leukaemia acute
  29. CYTARABINE [Suspect]
     Active Substance: CYTARABINE
     Indication: Chronic leukaemia
     Dosage: UNK, (PART OF CAG REGIMEN)
     Route: 065
     Dates: start: 20230214
  30. CYTARABINE [Suspect]
     Active Substance: CYTARABINE
     Indication: Precursor T-lymphoblastic leukaemia acute

REACTIONS (4)
  - Death [Fatal]
  - Drug ineffective [Unknown]
  - Malignant neoplasm progression [Unknown]
  - Off label use [Unknown]

NARRATIVE: CASE EVENT DATE: 20220101
